FAERS Safety Report 25521247 (Version 2)
Quarter: 2025Q3

REPORT INFORMATION
  Report Type: Report from Study
  Country: US (occurrence: US)
  Receive Date: 20250705
  Receipt Date: 20250730
  Transmission Date: 20251021
  Serious: Yes (Other)
  Sender: ALEXION PHARMACEUTICALS
  Company Number: US-AstraZeneca-CH-00900267A

PATIENT
  Age: 72 Year
  Sex: Male

DRUGS (1)
  1. ULTOMIRIS [Suspect]
     Active Substance: RAVULIZUMAB-CWVZ
     Indication: Myasthenia gravis
     Dosage: UNK, Q8W
     Route: 065

REACTIONS (4)
  - Diabetes mellitus [Unknown]
  - Feeling abnormal [Unknown]
  - Conjunctivitis [Unknown]
  - Borderline glaucoma [Unknown]

NARRATIVE: CASE EVENT DATE: 20250601
